FAERS Safety Report 4943565-3 (Version None)
Quarter: 2006Q1

REPORT INFORMATION
  Report Type: 
  Country: None (occurrence: None)
  Receive Date: 20060314
  Receipt Date: 20060307
  Transmission Date: 20060701
  Serious: Yes (Hospitalization)
  Sender: FDA-Public Use
  Company Number: US-BOEHRINGER INGELHEIM PHARMACEUTICALS, INC.-2006-BP-02594BP

PATIENT
  Sex: Female

DRUGS (6)
  1. MICARDIS [Suspect]
     Dates: start: 20050101
  2. MICARDIS [Suspect]
  3. TOPROL [Concomitant]
  4. ZETIA [Concomitant]
  5. LIPITOR [Concomitant]
  6. VERAPAMIL [Concomitant]

REACTIONS (3)
  - FATIGUE [None]
  - HYPOTENSION [None]
  - LABILE BLOOD PRESSURE [None]
